FAERS Safety Report 12172172 (Version 1)
Quarter: 2016Q1

REPORT INFORMATION
  Report Type: Spontaneous
  Country: TR (occurrence: TR)
  Receive Date: 20160311
  Receipt Date: 20160311
  Transmission Date: 20160526
  Serious: Yes (Hospitalization, Other)
  Sender: FDA-Public Use
  Company Number: TR-ACTAVIS-2016-05200

PATIENT
  Age: 29 Year
  Sex: Female

DRUGS (5)
  1. LAMOTRIGINE (UNKNOWN) [Suspect]
     Active Substance: LAMOTRIGINE
     Indication: BIPOLAR DISORDER
     Dosage: 25 MG, DAILY
     Route: 065
  2. LITHIUM CARBONATE (UNKNOWN) [Suspect]
     Active Substance: LITHIUM CARBONATE
     Indication: BIPOLAR DISORDER
     Dosage: 900 MG, DAILY
     Route: 065
  3. LAMOTRIGINE (UNKNOWN) [Suspect]
     Active Substance: LAMOTRIGINE
     Dosage: 75 MG, DAILY
     Route: 065
  4. DULOXETINE (UNKNOWN) [Suspect]
     Active Substance: DULOXETINE
     Indication: BIPOLAR DISORDER
     Dosage: 60 MG, DAILY
     Route: 065
  5. LAMOTRIGINE (UNKNOWN) [Suspect]
     Active Substance: LAMOTRIGINE
     Dosage: 50 MG, DAILY
     Route: 065

REACTIONS (1)
  - Toxic epidermal necrolysis [Recovered/Resolved]
